FAERS Safety Report 9239654 (Version 1)
Quarter: 2013Q2

REPORT INFORMATION
  Report Type: Spontaneous
  Country: US (occurrence: US)
  Receive Date: 20130418
  Receipt Date: 20130418
  Transmission Date: 20140414
  Serious: No
  Sender: FDA-Public Use
  Company Number: US-009507513-1304USA002291

PATIENT
  Sex: Female

DRUGS (1)
  1. IMPLANON [Suspect]
     Indication: CONTRACEPTION
     Dosage: 1 DF, UNK
     Dates: end: 201303

REACTIONS (4)
  - Implant site fibrosis [Unknown]
  - Medical device complication [Unknown]
  - Device difficult to use [Unknown]
  - Incorrect drug administration duration [Unknown]
